FAERS Safety Report 4384622-2 (Version None)
Quarter: 2004Q2

REPORT INFORMATION
  Report Type: 
  Country: None (occurrence: None)
  Receive Date: 20040625
  Receipt Date: 20030721
  Transmission Date: 20050107
  Serious: No
  Sender: FDA-Public Use
  Company Number: US-BRISTOL-MYERS SQUIBB COMPANY-12331773

PATIENT
  Sex: Female
  Weight: 54 kg

DRUGS (4)
  1. SINEMET [Suspect]
     Dosage: STARTED 50/200 AND SWITCHED TO 25/100
     Dates: start: 20000101
  2. NEXIUM [Concomitant]
  3. ESTROGEN PATCH [Concomitant]
     Route: 062
  4. PROGESTERONE ACETATE [Concomitant]
     Dosage: PROGESTERONE CREAM
     Route: 061

REACTIONS (1)
  - RASH [None]
